FAERS Safety Report 21985782 (Version 3)
Quarter: 2023Q2

REPORT INFORMATION
  Report Type: Spontaneous
  Country: IT (occurrence: IT)
  Receive Date: 20230213
  Receipt Date: 20230501
  Transmission Date: 20230721
  Serious: Yes (Death, Hospitalization, Other)
  Sender: FDA-Public Use
  Company Number: IT-ALXN-A202301629

PATIENT
  Age: 76 Year
  Sex: Female
  Weight: 63 kg

DRUGS (3)
  1. SOLIRIS [Suspect]
     Active Substance: ECULIZUMAB
     Dosage: 1200 MG, Q2W
     Route: 065
     Dates: start: 20200208, end: 20220818
  2. SOLIRIS [Suspect]
     Active Substance: ECULIZUMAB
     Indication: Atypical haemolytic uraemic syndrome
     Dosage: 900 MG, QW
     Route: 042
     Dates: start: 20180110
  3. SOLIRIS [Suspect]
     Active Substance: ECULIZUMAB
     Dosage: UNK, QMONTH
     Route: 065

REACTIONS (9)
  - Septic shock [Fatal]
  - Klebsiella infection [Fatal]
  - Seizure [Unknown]
  - Respiratory failure [Unknown]
  - Plasma cell myeloma recurrent [Unknown]
  - Thoracic vertebral fracture [Unknown]
  - Coma [Unknown]
  - Electrolyte imbalance [Unknown]
  - Off label use [Unknown]

NARRATIVE: CASE EVENT DATE: 20200101
